FAERS Safety Report 9446459 (Version 1)
Quarter: 2013Q3

REPORT INFORMATION
  Report Type: Spontaneous
  Country: US (occurrence: US)
  Receive Date: 20130807
  Receipt Date: 20130807
  Transmission Date: 20140515
  Serious: No
  Sender: FDA-Public Use
  Company Number: US-AMGEN-USASP2013048391

PATIENT
  Age: 54 Year
  Sex: Female
  Weight: 99.77 kg

DRUGS (11)
  1. ENBREL [Suspect]
     Indication: PRODUCT USED FOR UNKNOWN INDICATION
     Dosage: UNK
  2. HUMIRA [Suspect]
     Indication: RHEUMATOID ARTHRITIS
     Dosage: 40 MG, UNK
     Route: 058
     Dates: start: 201303, end: 201305
  3. OMEPRAZOLE [Concomitant]
     Indication: GASTROOESOPHAGEAL REFLUX DISEASE
     Dosage: UNK
  4. METOPROLOL [Concomitant]
     Indication: BLOOD PRESSURE INCREASED
     Dosage: UNK
  5. HYDROCHLOROTHIAZIDE [Concomitant]
     Indication: BLOOD PRESSURE INCREASED
     Dosage: UNK
  6. LISINOPRIL [Concomitant]
     Indication: BLOOD PRESSURE INCREASED
     Dosage: UNK
  7. HYDROXYCHLOROQUINE [Concomitant]
     Indication: RHEUMATOID ARTHRITIS
     Dosage: UNK
  8. AMLODIPINE [Concomitant]
     Indication: HYPERTENSION
     Dosage: UNK
  9. CETIRIZINE [Concomitant]
     Indication: SEASONAL ALLERGY
     Dosage: UNK
  10. PREDNISONE [Concomitant]
     Indication: RHEUMATOID ARTHRITIS
     Dosage: UNK
  11. IBUPROFEN [Concomitant]
     Indication: PAIN
     Dosage: UNK

REACTIONS (2)
  - Rash pruritic [Recovering/Resolving]
  - Drug hypersensitivity [Recovering/Resolving]
